FAERS Safety Report 19880714 (Version 2)
Quarter: 2021Q4

REPORT INFORMATION
  Report Type: Report from Study
  Country: CN (occurrence: CN)
  Receive Date: 20210924
  Receipt Date: 20211025
  Transmission Date: 20220303
  Serious: Yes (Hospitalization)
  Sender: FDA-Public Use
  Company Number: CN-MACROGENICS-2021000242

PATIENT
  Age: 66 Year
  Sex: Male
  Weight: 78 kg

DRUGS (22)
  1. MARGETUXIMAB [Suspect]
     Active Substance: MARGETUXIMAB
     Indication: Gastric cancer
     Dosage: 15 MILLIGRAM/KILOGRAM, Q3WEEKS
     Route: 042
     Dates: start: 20210526, end: 20210526
  2. MARGETUXIMAB [Suspect]
     Active Substance: MARGETUXIMAB
     Dosage: 15 MILLIGRAM/KILOGRAM, Q3WEEKS
     Route: 042
     Dates: start: 20210907, end: 20210907
  3. RETIFANLIMAB [Suspect]
     Active Substance: RETIFANLIMAB
     Indication: Gastric cancer
     Dosage: 375 MILLIGRAM, Q3WEEKS
     Route: 042
     Dates: start: 20210526, end: 20210526
  4. RETIFANLIMAB [Suspect]
     Active Substance: RETIFANLIMAB
     Dosage: 375 MILLIGRAM, Q3WEEKS
     Route: 042
     Dates: start: 20210907, end: 20210907
  5. OXALIPLATIN [Concomitant]
     Active Substance: OXALIPLATIN
     Indication: Gastric cancer
     Dosage: 250 MILLIGRAM, Q3WEEKS
     Route: 042
     Dates: start: 20210526, end: 20210526
  6. OXALIPLATIN [Concomitant]
     Active Substance: OXALIPLATIN
     Dosage: 193 MILLIGRAM, Q3WEEKS
     Route: 042
     Dates: start: 20210907, end: 20210907
  7. CAPECITABINE [Concomitant]
     Active Substance: CAPECITABINE
     Indication: Gastric cancer
     Dosage: 2000 MILLIGRAM/SQ. METER, BID
     Route: 048
     Dates: start: 20210526, end: 20210526
  8. CAPECITABINE [Concomitant]
     Active Substance: CAPECITABINE
     Dosage: 2000 MILLIGRAM/SQ. METER, BID
     Route: 048
     Dates: start: 20210907, end: 20210921
  9. LEUCOGEN [Concomitant]
     Active Substance: LEUCOGEN
     Indication: White blood cell count decreased
     Dosage: 20 MILLIGRAM, TID
     Route: 048
     Dates: start: 20210617
  10. LEUCOGEN [Concomitant]
     Active Substance: LEUCOGEN
     Indication: Neutrophil count decreased
  11. OPRELVEKIN [Concomitant]
     Active Substance: OPRELVEKIN
     Indication: Thrombocytopenia
     Dosage: 12000000 UNITS, Q24HR
     Route: 058
     Dates: start: 20210817
  12. DIPHENHYDRAMINE HYDROCHLORIDE [Concomitant]
     Active Substance: DIPHENHYDRAMINE HYDROCHLORIDE
     Indication: Premedication
     Dosage: 40 MILLIGRAM, QD
     Route: 030
     Dates: start: 20210820, end: 20210820
  13. DIPHENHYDRAMINE HYDROCHLORIDE [Concomitant]
     Active Substance: DIPHENHYDRAMINE HYDROCHLORIDE
     Dosage: 40 MILLIGRAM, QD
     Route: 030
     Dates: start: 20210907, end: 20210907
  14. FAMOTIDINE [Concomitant]
     Active Substance: FAMOTIDINE
     Indication: Premedication
     Dosage: 40 MILLIGRAM, QD
     Route: 042
     Dates: start: 20210820, end: 20210820
  15. FAMOTIDINE [Concomitant]
     Active Substance: FAMOTIDINE
     Dosage: 40 MILLIGRAM, QD
     Route: 042
     Dates: start: 20210907, end: 20210907
  16. ESOMEPRAZOLE SODIUM [Concomitant]
     Active Substance: ESOMEPRAZOLE SODIUM
     Indication: Premedication
     Dosage: 40 MILLIGRAM, QD
     Route: 042
     Dates: start: 20210907, end: 20210907
  17. PALONOSETRON HYDROCHLORIDE [Concomitant]
     Active Substance: PALONOSETRON HYDROCHLORIDE
     Indication: Premedication
     Dosage: 0.25 MILLIGRAM, QD
     Route: 042
     Dates: start: 20210907, end: 20210907
  18. APREPITANT [Concomitant]
     Active Substance: APREPITANT
     Indication: Premedication
     Dosage: 125 MILLIGRAM, Q24HR
     Route: 048
     Dates: start: 20210907, end: 20210907
  19. APREPITANT [Concomitant]
     Active Substance: APREPITANT
     Dosage: 80 MILLIGRAM, Q24HR
     Route: 048
     Dates: start: 20210908, end: 20210909
  20. ESZOPICLONE [Concomitant]
     Active Substance: ESZOPICLONE
     Indication: Insomnia
     Dosage: 3 MILLIGRAM, PRN
     Route: 048
     Dates: start: 20190101
  21. BICYCLOL [Concomitant]
     Active Substance: BICYCLOL
     Indication: Transaminases increased
     Dosage: 25 MILLIGRAM, TID
     Route: 048
     Dates: start: 20210820
  22. PHOSPHOLIPID [Concomitant]
     Active Substance: PHOSPHOLIPID
     Indication: Transaminases increased
     Dosage: 456 MILLIGRAM, TID
     Route: 048
     Dates: start: 20210820

REACTIONS (1)
  - Chest discomfort [Recovered/Resolved]

NARRATIVE: CASE EVENT DATE: 20210910
